FAERS Safety Report 14242179 (Version 1)
Quarter: 2017Q4

REPORT INFORMATION
  Report Type: Spontaneous
  Country: US (occurrence: US)
  Receive Date: 20171201
  Receipt Date: 20171201
  Transmission Date: 20180321
  Serious: Yes (Life-Threatening, Hospitalization, Other)
  Sender: FDA-Public Use
  Company Number: US-ACCORD-061493

PATIENT
  Age: 53 Year
  Sex: Female

DRUGS (9)
  1. VINCRISTINE [Suspect]
     Active Substance: VINCRISTINE
     Indication: DIFFUSE LARGE B-CELL LYMPHOMA
     Dosage: 1ST, 2ND, FOURTH, 3RD CYCLE: 20% DOSE-REDUCED OF R-EPOCH
  2. PREDNISONE. [Suspect]
     Active Substance: PREDNISONE
     Indication: DIFFUSE LARGE B-CELL LYMPHOMA
     Dosage: 1ST, SECOND.?3RD OF R-EPOCH: 20% DOSE-REDUCED OF R-EPOCH,?4TH CYCLE
  3. FLUCONAZOLE. [Concomitant]
     Active Substance: FLUCONAZOLE
     Indication: PROPHYLAXIS
  4. SULFAMETHOXAZOLE/TRIMETHOPRIM [Concomitant]
     Indication: PROPHYLAXIS
  5. ETOPOSIDE. [Suspect]
     Active Substance: ETOPOSIDE
     Indication: DIFFUSE LARGE B-CELL LYMPHOMA
     Dosage: 1ST CY.?2ND-DOSE WAS REDUCED.?THIRD: 20% DOSE-REDUCED OF R-EPOCH,?4TH CYCLE
  6. DOXORUBICIN [Suspect]
     Active Substance: DOXORUBICIN
     Indication: DIFFUSE LARGE B-CELL LYMPHOMA
     Dosage: 1ST, 2ND- DOSE REDUCED,?3RD: 20% DOSE-REDUCED OF R-EPOCH,?FOURTH CYCLE
  7. RITUXIMAB. [Suspect]
     Active Substance: RITUXIMAB
     Indication: DIFFUSE LARGE B-CELL LYMPHOMA
     Dosage: 1ST, 2ND, 3RD: 20% DOSE-REDUCED OF R-EPOCH,?4TH CYCLE
  8. CYCLOPHOSPHAMIDE/CYCLOPHOSPHAMIDE MONOHYDRATE [Suspect]
     Active Substance: CYCLOPHOSPHAMIDE
     Indication: DIFFUSE LARGE B-CELL LYMPHOMA
     Dosage: 1ST, 2ND, THIRD: 20% DOSE-REDUCED OF R-EPOCH,?4TH CYCLE
  9. AZITHROMYCIN ANHYDROUS. [Concomitant]
     Active Substance: AZITHROMYCIN ANHYDROUS
     Indication: PROPHYLAXIS

REACTIONS (7)
  - Bacteraemia [Unknown]
  - Febrile neutropenia [Unknown]
  - Anaemia [Recovering/Resolving]
  - Off label use [Unknown]
  - Septic shock [Unknown]
  - Cystitis haemorrhagic [Recovering/Resolving]
  - BK virus infection [Recovering/Resolving]
